FAERS Safety Report 4423898-X (Version None)
Quarter: 2004Q3

REPORT INFORMATION
  Report Type: 
  Country: None (occurrence: None)
  Receive Date: 20040715
  Receipt Date: 20040422
  Transmission Date: 20050211
  Serious: Yes (Other)
  Sender: FDA-Public Use
  Company Number: 2003143511US

PATIENT
  Sex: Male
  Weight: 68.9 kg

DRUGS (1)
  1. CELEBREX [Suspect]
     Dosage: 200 MG, QD, ORAL
     Route: 048
     Dates: start: 19990317

REACTIONS (1)
  - CEREBROVASCULAR ACCIDENT [None]
